FAERS Safety Report 23676443 (Version 1)
Quarter: 2024Q1

REPORT INFORMATION
  Report Type: Spontaneous
  Country: RU (occurrence: None)
  Receive Date: 20240327
  Receipt Date: 20240327
  Transmission Date: 20240409
  Serious: Yes (Death)
  Sender: FDA-Public Use
  Company Number: RU-ROCHE-3528497

PATIENT
  Age: 56 Year
  Sex: Female

DRUGS (3)
  1. ATEZOLIZUMAB [Suspect]
     Active Substance: ATEZOLIZUMAB
     Indication: Product used for unknown indication
     Route: 065
  2. CARBOPLATIN [Concomitant]
     Active Substance: CARBOPLATIN
  3. ETOPOSIDE [Concomitant]
     Active Substance: ETOPOSIDE

REACTIONS (9)
  - Pyrexia [Fatal]
  - Nausea [Fatal]
  - Vomiting [Fatal]
  - Headache [Fatal]
  - Hallucination [Fatal]
  - Syncope [Fatal]
  - Hyperthermia [Fatal]
  - Blood pressure decreased [Fatal]
  - Retrograde amnesia [Fatal]
